FAERS Safety Report 8373048-2 (Version None)
Quarter: 2012Q2

REPORT INFORMATION
  Report Type: 
  Country: None (occurrence: None)
  Receive Date: 20120521
  Receipt Date: 20120511
  Transmission Date: 20120825
  Serious: Yes (Other)
  Sender: FDA-Public Use
  Company Number: US-MYLANLABS-2012S1010024

PATIENT
  Age: 19 Year
  Sex: Female

DRUGS (3)
  1. AMNESTEEM [Suspect]
     Route: 048
     Dates: start: 20111223
  2. ORAL CONTRACEPTIVE NOS [Concomitant]
  3. AMNESTEEM [Suspect]
     Route: 048
     Dates: end: 20120301

REACTIONS (1)
  - MATERNAL EXPOSURE BEFORE PREGNANCY [None]
